FAERS Safety Report 8120974-5 (Version None)
Quarter: 2012Q1

REPORT INFORMATION
  Report Type: 
  Country: None (occurrence: None)
  Receive Date: 20120208
  Receipt Date: 20120126
  Transmission Date: 20120608
  Serious: Yes (Hospitalization, Other)
  Sender: FDA-Public Use
  Company Number: US-ELI_LILLY_AND_COMPANY-US201201009223

PATIENT
  Sex: Female

DRUGS (8)
  1. PROZAC [Concomitant]
  2. ZOCOR [Concomitant]
  3. FORTEO [Suspect]
     Indication: OSTEOPOROSIS
     Dosage: 20 UG, QD
  4. ABILIFY [Concomitant]
  5. KLONOPIN [Concomitant]
  6. LEVOTHROID [Concomitant]
     Indication: THYROID DISORDER
  7. TRICOR [Concomitant]
  8. MORPHINE [Concomitant]
     Dosage: UNK

REACTIONS (6)
  - MYOCARDIAL INFARCTION [None]
  - ABDOMINAL PAIN UPPER [None]
  - MUSCLE SPASMS [None]
  - ARTERIAL OCCLUSIVE DISEASE [None]
  - ABDOMINAL DISCOMFORT [None]
  - MALAISE [None]
